FAERS Safety Report 25321277 (Version 1)
Quarter: 2025Q2

REPORT INFORMATION
  Report Type: Spontaneous
  Country: US (occurrence: US)
  Receive Date: 20250515
  Receipt Date: 20250515
  Transmission Date: 20250717
  Serious: Yes (Hospitalization, Other)
  Sender: AMGEN
  Company Number: US-AMGEN-USASP2025092340

PATIENT
  Age: 13 Day
  Sex: Female

DRUGS (3)
  1. ROMIPLOSTIM [Suspect]
     Active Substance: ROMIPLOSTIM
     Indication: Thrombocytopenia neonatal
     Dosage: 2 MICROGRAM/KILOGRAM, QWK
     Route: 065
  2. ROMIPLOSTIM [Suspect]
     Active Substance: ROMIPLOSTIM
     Dosage: 3 MICROGRAM/KILOGRAM, QWK
     Route: 065
  3. ROMIPLOSTIM [Suspect]
     Active Substance: ROMIPLOSTIM
     Dosage: 3 MICROGRAM/KILOGRAM, QWK
     Route: 065

REACTIONS (3)
  - Thrombocytopenia neonatal [Unknown]
  - Drug effective for unapproved indication [Unknown]
  - Off label use [Unknown]
